FAERS Safety Report 23197429 (Version 1)
Quarter: 2023Q4

REPORT INFORMATION
  Report Type: Report from Study
  Country: CA (occurrence: None)
  Receive Date: 20231117
  Receipt Date: 20231117
  Transmission Date: 20240110
  Serious: Yes (Death, Other)
  Sender: FDA-Public Use
  Company Number: 2023A261519

PATIENT
  Sex: Male

DRUGS (3)
  1. TEZSPIRE [Suspect]
     Active Substance: TEZEPELUMAB-EKKO
     Indication: Asthma
     Route: 058
     Dates: start: 20230802, end: 20231025
  2. ARNUITY ELLLIPTA [Concomitant]
     Route: 048
     Dates: start: 202304
  3. TRELEGY ELLLIPTA [Concomitant]
     Route: 048
     Dates: start: 202304

REACTIONS (1)
  - Death [Fatal]
